FAERS Safety Report 7007996-2 (Version None)
Quarter: 2010Q3

REPORT INFORMATION
  Report Type: 
  Country: None (occurrence: None)
  Receive Date: 20100922
  Receipt Date: 20100910
  Transmission Date: 20110219
  Serious: Yes (Hospitalization)
  Sender: FDA-Public Use
  Company Number: PHHY2010IT13136

PATIENT
  Age: 48 Year
  Sex: Female

DRUGS (2)
  1. ZADITEN [Suspect]
     Indication: ASTHMA
     Dosage: UNK
     Route: 048
  2. DIFIX [Suspect]
     Dosage: UNK
     Route: 048
     Dates: start: 20090401, end: 20100211

REACTIONS (3)
  - ALANINE AMINOTRANSFERASE INCREASED [None]
  - BLOOD BILIRUBIN INCREASED [None]
  - HEPATITIS ACUTE [None]
